FAERS Safety Report 8221294-0 (Version None)
Quarter: 2012Q1

REPORT INFORMATION
  Report Type: 
  Country: None (occurrence: None)
  Receive Date: 20120320
  Receipt Date: 20120315
  Transmission Date: 20120608
  Serious: Yes (Death, Other)
  Sender: FDA-Public Use
  Company Number: ES-PFIZER INC-2012052190

PATIENT
  Age: 68 Year
  Sex: Male

DRUGS (3)
  1. INSULIN [Concomitant]
  2. SUTENT [Suspect]
     Indication: RENAL CELL CARCINOMA
     Dosage: 37.5 MG, 1X/DAY
     Dates: start: 20100201, end: 20100501
  3. METFORMIN HCL [Concomitant]

REACTIONS (3)
  - DISEASE PROGRESSION [None]
  - RENAL CELL CARCINOMA [None]
  - MUCOSAL INFLAMMATION [None]
